FAERS Safety Report 4895625-3 (Version None)
Quarter: 2006Q1

REPORT INFORMATION
  Report Type: 
  Country: None (occurrence: None)
  Receive Date: 20060125
  Receipt Date: 20060118
  Transmission Date: 20060701
  Serious: Yes (Life-Threatening)
  Sender: FDA-Public Use
  Company Number: 230213K06USA

PATIENT
  Age: 57 Year
  Sex: Female

DRUGS (5)
  1. REBIF (BETAFERON BETA) [Suspect]
     Indication: MULTIPLE SCLEROSIS
     Dosage: 44 MCG, 3 IN 1 WEEKS, SUBCUTANEOUS
     Route: 058
     Dates: start: 20051011
  2. NEURONTIN [Concomitant]
  3. PROVIGIL [Concomitant]
  4. PREMARIN [Concomitant]
  5. NEXIUM [Concomitant]

REACTIONS (1)
  - APPENDICITIS PERFORATED [None]
